FAERS Safety Report 21956822 (Version 6)
Quarter: 2023Q4

REPORT INFORMATION
  Report Type: Report from Study
  Country: US (occurrence: US)
  Receive Date: 20230206
  Receipt Date: 20231024
  Transmission Date: 20240110
  Serious: Yes (Hospitalization)
  Sender: FDA-Public Use
  Company Number: US-ABBVIE-4294209

PATIENT
  Age: 75 Year
  Sex: Female
  Weight: 108.86 kg

DRUGS (2)
  1. HUMIRA [Suspect]
     Active Substance: ADALIMUMAB
     Indication: Rheumatoid arthritis
     Dosage: CITRATE FREE.?FORM STRENGTH WAS 40 MILLIGRAM.
     Route: 058
     Dates: start: 20211101
  2. HUMIRA [Suspect]
     Active Substance: ADALIMUMAB
     Dosage: CITRATE FREE.?FORM STRENGTH WAS 40 MILLIGRAM.
     Route: 058
     Dates: start: 20230205

REACTIONS (7)
  - Renal failure [Not Recovered/Not Resolved]
  - Fall [Unknown]
  - Gait inability [Unknown]
  - Joint injury [Recovering/Resolving]
  - Incontinence [Unknown]
  - Internal injury [Recovering/Resolving]
  - Balance disorder [Unknown]

NARRATIVE: CASE EVENT DATE: 20221228
